FAERS Safety Report 9305059 (Version 4)
Quarter: 2013Q3

REPORT INFORMATION
  Report Type: Report from Study
  Country: US (occurrence: US)
  Receive Date: 20130523
  Receipt Date: 20130923
  Transmission Date: 20140515
  Serious: Yes (Hospitalization)
  Sender: FDA-Public Use
  Company Number: US-JNJFOC-20130509586

PATIENT
  Age: 60 Year
  Sex: Male
  Weight: 81.65 kg

DRUGS (3)
  1. USTEKINUMAB [Suspect]
     Indication: PSORIASIS
     Route: 058
     Dates: start: 20091026, end: 20091105
  2. CORTICOSTEROID NOS [Concomitant]
     Dosage: QD- BID (ONCE A DAY - TWO TIMES A DAY)
     Route: 061
     Dates: start: 2009
  3. METHOTREXATE [Concomitant]
     Dosage: 4 TABLETS WEEKLY
     Route: 048
     Dates: start: 20090923

REACTIONS (1)
  - Pneumonia [Recovered/Resolved]
